FAERS Safety Report 6618512-9 (Version None)
Quarter: 2010Q1

REPORT INFORMATION
  Report Type: 
  Country: None (occurrence: None)
  Receive Date: 20100308
  Receipt Date: 20100225
  Transmission Date: 20100710
  Serious: Yes (Hospitalization)
  Sender: FDA-Public Use
  Company Number: US-ELI_LILLY_AND_COMPANY-US201003000594

PATIENT
  Sex: Female
  Weight: 131.52 kg

DRUGS (5)
  1. BYETTA [Suspect]
     Indication: TYPE 2 DIABETES MELLITUS
     Dosage: 5 UG, 2/D
     Route: 058
     Dates: start: 20100101, end: 20100101
  2. BYETTA [Suspect]
     Dosage: 10 UG, 2/D
     Route: 058
     Dates: start: 20100101
  3. LIPITOR [Concomitant]
     Indication: BLOOD CHOLESTEROL
  4. ALLOPURINOL [Concomitant]
     Indication: GOUT
     Dosage: UNK, DAILY (1/D)
  5. PRINIVIL [Concomitant]
     Indication: BLOOD PRESSURE
     Dates: end: 20100101

REACTIONS (5)
  - ABASIA [None]
  - BLOOD PRESSURE FLUCTUATION [None]
  - FALL [None]
  - HYPERTENSION [None]
  - INTENTIONAL DRUG MISUSE [None]
